FAERS Safety Report 6909342-9 (Version None)
Quarter: 2010Q3

REPORT INFORMATION
  Report Type: 
  Country: None (occurrence: None)
  Receive Date: 20100805
  Receipt Date: 20100728
  Transmission Date: 20110219
  Serious: Yes (Hospitalization)
  Sender: FDA-Public Use
  Company Number: PHHO2010DE09789

PATIENT
  Sex: Male
  Weight: 111.8 kg

DRUGS (2)
  1. CERTICAN [Suspect]
     Indication: LIVER TRANSPLANT
     Dosage: 2 MG, BID
     Route: 048
     Dates: start: 20100114
  2. TACROLIMUS [Suspect]
     Indication: LIVER TRANSPLANT
     Dosage: 1.5 MG, BID
     Route: 048
     Dates: start: 20091215

REACTIONS (4)
  - BILE DUCT STENOSIS [None]
  - BILE DUCT STENT INSERTION [None]
  - BLOOD BILIRUBIN INCREASED [None]
  - HYPERTRANSAMINASAEMIA [None]
